FAERS Safety Report 4439481-6 (Version None)
Quarter: 2004Q3

REPORT INFORMATION
  Report Type: 
  Country: None (occurrence: None)
  Receive Date: 20040901
  Receipt Date: 20040901
  Transmission Date: 20050211
  Serious: Yes (Hospitalization)
  Sender: FDA-Public Use
  Company Number: None

PATIENT
  Sex: Female
  Weight: 47.6277 kg

DRUGS (7)
  1. PRAVACHOL [Suspect]
     Indication: BLOOD CHOLESTEROL
     Dosage: PRIOR TO ADMISSION
  2. ARICEPT [Suspect]
     Indication: DEMENTIA ALZHEIMER'S TYPE
     Dosage: PRIOR TO ADMISSION
  3. PLAVIX [Concomitant]
  4. DIOVAN [Concomitant]
  5. HYDROCHLOROTHIAZIDE [Concomitant]
  6. EVISTA [Concomitant]
  7. IMIPRAM TAB [Concomitant]

REACTIONS (6)
  - ASTHENIA [None]
  - CONFUSIONAL STATE [None]
  - DEHYDRATION [None]
  - FALL [None]
  - HEPATIC ENZYME INCREASED [None]
  - WRIST FRACTURE [None]
